FAERS Safety Report 4370786-3 (Version None)
Quarter: 2004Q2

REPORT INFORMATION
  Report Type: 
  Country: None (occurrence: None)
  Receive Date: 20040601
  Receipt Date: 20040517
  Transmission Date: 20050107
  Serious: Yes (Hospitalization)
  Sender: FDA-Public Use
  Company Number: 2004GB01208

PATIENT
  Age: 48 Year
  Sex: Female

DRUGS (6)
  1. LISINOPRIL [Suspect]
     Indication: HYPERTENSION
  2. OMEPRAZOLE [Suspect]
  3. FEXOFENADINE HCL [Suspect]
  4. LOFEPRAMINE [Suspect]
  5. PREMARIN [Suspect]
  6. PENICILLIN G [Concomitant]

REACTIONS (6)
  - AGITATION [None]
  - ANGIONEUROTIC OEDEMA [None]
  - ANXIETY [None]
  - DYSPNOEA EXACERBATED [None]
  - SPEECH DISORDER [None]
  - TONGUE OEDEMA [None]
